FAERS Safety Report 7211135-2 (Version None)
Quarter: 2011Q1

REPORT INFORMATION
  Report Type: 
  Country: None (occurrence: None)
  Receive Date: 20110105
  Receipt Date: 20101222
  Transmission Date: 20110831
  Serious: Yes (Other)
  Sender: FDA-Public Use
  Company Number: PHHY2010SA87366

PATIENT
  Age: 30 Year
  Sex: Male

DRUGS (2)
  1. RIBAVIRIN [Suspect]
  2. INTERFERON ALFA-2B [Suspect]

REACTIONS (6)
  - UVEITIS [None]
  - RETINAL EXUDATES [None]
  - OCULAR HYPERAEMIA [None]
  - VOGT-KOYANAGI-HARADA SYNDROME [None]
  - RETINAL DETACHMENT [None]
  - VISUAL ACUITY REDUCED [None]
